FAERS Safety Report 26025452 (Version 6)
Quarter: 2025Q4

REPORT INFORMATION
  Report Type: Spontaneous
  Country: JP (occurrence: JP)
  Receive Date: 20251111
  Receipt Date: 20251226
  Transmission Date: 20260117
  Serious: Yes (Other)
  Sender: ABBVIE
  Company Number: JP-ABBVIE-5973174

PATIENT
  Age: 16 Year
  Sex: Female
  Weight: 53 kg

DRUGS (7)
  1. SKYRIZI [Suspect]
     Active Substance: RISANKIZUMAB-RZAA
     Indication: Crohn^s disease
     Dosage: SOLUTION FOR INJECTION IN CARTRIDGE
     Route: 058
     Dates: start: 20241007, end: 20241007
  2. SKYRIZI [Suspect]
     Active Substance: RISANKIZUMAB-RZAA
     Dosage: SOLUTION FOR INJECTION IN CARTRIDGE
     Route: 058
     Dates: start: 20250417, end: 20250417
  3. SKYRIZI [Suspect]
     Active Substance: RISANKIZUMAB-RZAA
     Dosage: SOLUTION FOR INJECTION IN CARTRIDGE
     Route: 058
     Dates: start: 20241209, end: 20241209
  4. SKYRIZI [Suspect]
     Active Substance: RISANKIZUMAB-RZAA
     Dosage: SOLUTION FOR INJECTION IN CARTRIDGE
     Route: 058
     Dates: start: 20250203, end: 20250203
  5. SKYRIZI [Suspect]
     Active Substance: RISANKIZUMAB-RZAA
     Indication: Crohn^s disease
     Dosage: FORM STRENGTH: 600 MILLIGRAM?INTRAVENOUS INFUSION?INTRAVENOUS DRIP
     Route: 042
     Dates: start: 20240718, end: 20240718
  6. SKYRIZI [Suspect]
     Active Substance: RISANKIZUMAB-RZAA
     Indication: Crohn^s disease
     Dosage: FORM STRENGTH: 600 MILLIGRAM?INTRAVENOUS INFUSION?INTRAVENOUS DRIP
     Route: 042
     Dates: start: 20240814, end: 20240814
  7. SKYRIZI [Suspect]
     Active Substance: RISANKIZUMAB-RZAA
     Indication: Crohn^s disease
     Dosage: FORM STRENGTH: 600 MILLIGRAM?INTRAVENOUS INFUSION?INTRAVENOUS DRIP
     Route: 042
     Dates: start: 20240909, end: 20240909

REACTIONS (14)
  - Muscular weakness [Recovered/Resolved]
  - Muscular weakness [Recovered/Resolved]
  - Fatigue [Unknown]
  - Dyspnoea [Unknown]
  - Muscular weakness [Recovered/Resolved]
  - Infectious mononucleosis [Recovered/Resolved]
  - Atonic seizures [Recovered/Resolved]
  - Muscular weakness [Recovered/Resolved]
  - Liver disorder [Recovered/Resolved]
  - Epstein-Barr virus infection [Recovered/Resolved]
  - Fatigue [Recovered/Resolved]
  - Atonic seizures [Recovered/Resolved]
  - Atonic seizures [Recovered/Resolved]
  - Atonic seizures [Recovered/Resolved]

NARRATIVE: CASE EVENT DATE: 20240101
